FAERS Safety Report 19129496 (Version 3)
Quarter: 2022Q4

REPORT INFORMATION
  Report Type: Spontaneous
  Country: US (occurrence: US)
  Receive Date: 20210413
  Receipt Date: 20221020
  Transmission Date: 20230113
  Serious: No
  Sender: FDA-Public Use
  Company Number: US-PFIZER INC-2020130157

PATIENT
  Age: 65 Year
  Sex: Female

DRUGS (2)
  1. XELJANZ XR [Suspect]
     Active Substance: TOFACITINIB CITRATE
     Dosage: 11 MG
  2. XELJANZ XR [Suspect]
     Active Substance: TOFACITINIB CITRATE
     Dosage: UNK, ALTERNATE DAY (EVERY OTHER DAY)
     Dates: start: 20200321

REACTIONS (5)
  - Intentional product use issue [Unknown]
  - Musculoskeletal disorder [Unknown]
  - Pain [Unknown]
  - Mania [Unknown]
  - Headache [Unknown]

NARRATIVE: CASE EVENT DATE: 20200321
